FAERS Safety Report 15478208 (Version 1)
Quarter: 2018Q4

REPORT INFORMATION
  Report Type: Spontaneous
  Country: UM (occurrence: UM)
  Receive Date: 20181002
  Receipt Date: 20181002
  Transmission Date: 20190205
  Serious: Yes (Hospitalization)
  Sender: FDA-Public Use
  Company Number: None

PATIENT
  Age: 31 Year
  Sex: Female
  Weight: 92.7 kg

DRUGS (2)
  1. DEXTROAMPHET SACCHARAT, AMPHET ASPARTATE, DEXTROAMPHET SULFATE AND AMPHET SULFAT [Suspect]
     Active Substance: AMPHETAMINE ASPARTATE\AMPHETAMINE SULFATE\DEXTROAMPHETAMINE SACCHARATE\DEXTROAMPHETAMINE SULFATE
     Indication: ATTENTION DEFICIT/HYPERACTIVITY DISORDER
     Dosage: ?          QUANTITY:1 TABLET(S);?
     Route: 048
  2. WOMANS VITAMIN [Concomitant]

REACTIONS (14)
  - Irritability [None]
  - Nausea [None]
  - Palpitations [None]
  - Musculoskeletal stiffness [None]
  - Mood altered [None]
  - Neck pain [None]
  - Malaise [None]
  - Back pain [None]
  - Bruxism [None]
  - Thinking abnormal [None]
  - Peripheral coldness [None]
  - Blood pressure increased [None]
  - Tension headache [None]
  - Impatience [None]

NARRATIVE: CASE EVENT DATE: 20180928
